FAERS Safety Report 23858035 (Version 2)
Quarter: 2025Q3

REPORT INFORMATION
  Report Type: Spontaneous
  Country: JP (occurrence: JP)
  Receive Date: 20240515
  Receipt Date: 20250903
  Transmission Date: 20251021
  Serious: Yes (Other)
  Sender: CHEPLAPHARM
  Company Number: JP-ELI_LILLY_AND_COMPANY-JP202404019247

PATIENT
  Age: 82 Year
  Sex: Male

DRUGS (2)
  1. OLANZAPINE [Suspect]
     Active Substance: OLANZAPINE
     Indication: Product used for unknown indication
     Dosage: ZYPREXA ZYDIS 5 MG; QD?DAILY DOSE: 5 MILLIGRAM
     Route: 048
     Dates: start: 201905, end: 202209
  2. OLANZAPINE [Suspect]
     Active Substance: OLANZAPINE
     Indication: Product used for unknown indication
     Dosage: 10 MG, DAILY/ZYPREXA ZYDIS 10 MG; QD?DAILY DOSE: 10 MILLIGRAM
     Route: 048
     Dates: start: 201906

REACTIONS (2)
  - Pneumonia aspiration [Unknown]
  - Dysphagia [Unknown]
